FAERS Safety Report 13366163 (Version 3)
Quarter: 2017Q2

REPORT INFORMATION
  Report Type: Spontaneous
  Country: JP (occurrence: JP)
  Receive Date: 20170323
  Receipt Date: 20170503
  Transmission Date: 20170830
  Serious: Yes (Other)
  Sender: FDA-Public Use
  Company Number: JP-ABBVIE-17P-087-1915279-00

PATIENT
  Sex: Female

DRUGS (6)
  1. LAMICTAL [Suspect]
     Active Substance: LAMOTRIGINE
     Indication: PARTIAL SEIZURES
     Route: 048
  2. VALPROATE SODIUM. [Suspect]
     Active Substance: VALPROATE SODIUM
     Indication: PARTIAL SEIZURES
     Route: 065
  3. LAMICTAL [Suspect]
     Active Substance: LAMOTRIGINE
     Route: 048
  4. TOPIRAMATE. [Suspect]
     Active Substance: TOPIRAMATE
     Indication: PARTIAL SEIZURES
     Route: 065
  5. CLOBAZAM [Suspect]
     Active Substance: CLOBAZAM
     Indication: PARTIAL SEIZURES
     Route: 048
  6. ETHOTOIN [Suspect]
     Active Substance: ETHOTOIN
     Indication: PARTIAL SEIZURES
     Route: 065

REACTIONS (20)
  - Clonic convulsion [Unknown]
  - Posture abnormal [Unknown]
  - Conjunctival hyperaemia [Unknown]
  - Drug use disorder [Unknown]
  - Myoclonus [Unknown]
  - Glossoptosis [Unknown]
  - Developmental delay [Unknown]
  - Dysphagia [Unknown]
  - Reduced facial expression [Unknown]
  - Partial seizures [Unknown]
  - Salivary hypersecretion [Recovering/Resolving]
  - Seizure [Recovering/Resolving]
  - Epilepsy [Unknown]
  - Eye movement disorder [Unknown]
  - Somnolence [Recovering/Resolving]
  - Hyporeflexia [Unknown]
  - Cyanosis [Unknown]
  - Speech disorder developmental [Unknown]
  - Hypotonia [Unknown]
  - Tonic convulsion [Unknown]
